FAERS Safety Report 15936601 (Version 3)
Quarter: 2019Q1

REPORT INFORMATION
  Report Type: Report from Study
  Country: US (occurrence: US)
  Receive Date: 20190208
  Receipt Date: 20190226
  Transmission Date: 20190417
  Serious: Yes (Hospitalization)
  Sender: FDA-Public Use
  Company Number: US-ROCHE-2259821

PATIENT
  Sex: Male
  Weight: 55.2 kg

DRUGS (1)
  1. NUTROPIN AQ [Suspect]
     Active Substance: SOMATROPIN
     Indication: BODY HEIGHT BELOW NORMAL
     Dosage: NUSPIN 10 INJECTION, 0.1 MG DOSING INCREMENTS, 7 INJECTIONS PER WEEK, DISPENSED 3 MONTH SUPPLY AND R
     Route: 058
     Dates: start: 20170209

REACTIONS (8)
  - Arthralgia [Unknown]
  - Joint swelling [Unknown]
  - Muscular weakness [Unknown]
  - Musculoskeletal stiffness [Unknown]
  - Oedema due to cardiac disease [Unknown]
  - Joint dislocation [Unknown]
  - Cough [Unknown]
  - Dysphonia [Unknown]
